FAERS Safety Report 18199821 (Version 3)
Quarter: 2020Q3

REPORT INFORMATION
  Report Type: Report from Study
  Country: GB (occurrence: GB)
  Receive Date: 20200827
  Receipt Date: 20200914
  Transmission Date: 20201103
  Serious: Yes (Hospitalization, Other)
  Sender: FDA-Public Use
  Company Number: GB-EMD SERONO-9173796

PATIENT
  Age: 39 Year
  Sex: Female

DRUGS (1)
  1. REBIF [Suspect]
     Active Substance: INTERFERON BETA-1A
     Indication: MULTIPLE SCLEROSIS
     Dosage: (6 MIU) CARTRIDGE
     Route: 058
     Dates: end: 201910

REACTIONS (7)
  - Fatigue [Unknown]
  - Multiple sclerosis relapse [Unknown]
  - Herpes zoster [Unknown]
  - Insomnia [Unknown]
  - Epilepsy [Unknown]
  - Loss of consciousness [Unknown]
  - Headache [Unknown]

NARRATIVE: CASE EVENT DATE: 2018
